FAERS Safety Report 8247402 (Version 2)
Quarter: 2013Q1

REPORT INFORMATION
  Report Type: Spontaneous
  Country: US (occurrence: US)
  Receive Date: 20111116
  Receipt Date: 20130215
  Transmission Date: 20140127
  Serious: Yes (Hospitalization)
  Sender: FDA-Public Use
  Company Number: US-GLAXOSMITHKLINE-A0725142A

PATIENT
  Age: 83 Year
  Sex: Male
  Weight: 79.5 kg

DRUGS (17)
  1. AVANDIA [Suspect]
     Indication: TYPE 2 DIABETES MELLITUS
     Dosage: 8MG PER DAY
     Route: 048
     Dates: start: 20040521, end: 200609
  2. LISINOPRIL [Concomitant]
  3. WARFARIN [Concomitant]
  4. ASPIRIN [Concomitant]
  5. HYDROXYCHLOROQUINE [Concomitant]
  6. COZAAR [Concomitant]
  7. CRESTOR [Concomitant]
  8. CYMBALTA [Concomitant]
  9. VITAMIN C [Concomitant]
  10. FLAX OIL [Concomitant]
  11. FISH OIL [Concomitant]
  12. SAW PALMETTO [Concomitant]
  13. VITAMIN E [Concomitant]
  14. VITAMIN B [Concomitant]
  15. IRON [Concomitant]
  16. FOLIC ACID [Concomitant]
  17. NITROFURANTOIN [Concomitant]

REACTIONS (2)
  - Cardiac failure congestive [Not Recovered/Not Resolved]
  - Heart injury [Unknown]
